FAERS Safety Report 8858427 (Version 1)
Quarter: 2012Q4

REPORT INFORMATION
  Report Type: 
  Country: CA (occurrence: CA)
  Receive Date: 20121024
  Receipt Date: 20121024
  Transmission Date: 20130627
  Serious: Yes (Other)
  Sender: FDA-Public Use
  Company Number: PHHY2008CA044467

PATIENT

DRUGS (1)
  1. ZOMETA [Suspect]
     Dates: start: 20080305

REACTIONS (3)
  - Blood lactate dehydrogenase increased [Unknown]
  - Gamma-glutamyltransferase increased [Unknown]
  - Blood calcium decreased [Unknown]
